FAERS Safety Report 6235081-6 (Version None)
Quarter: 2009Q2

REPORT INFORMATION
  Report Type: 
  Country: None (occurrence: None)
  Receive Date: 20090618
  Receipt Date: 20090609
  Transmission Date: 20091009
  Serious: Yes (Hospitalization, Other)
  Sender: FDA-Public Use
  Company Number: PHHY2009FR23072

PATIENT
  Sex: Male

DRUGS (15)
  1. NEORAL [Suspect]
     Indication: RENAL TRANSPLANT
     Dosage: UNK
     Route: 048
     Dates: start: 20080324, end: 20080812
  2. SOLUPRED [Concomitant]
     Indication: RENAL TRANSPLANT
     Dosage: UNK
     Route: 048
     Dates: start: 20080411
  3. SOLUPRED [Concomitant]
     Dosage: 1 MG/KG
  4. CELLCEPT [Concomitant]
     Indication: RENAL TRANSPLANT
     Dosage: UNK
     Route: 048
     Dates: start: 20080313
  5. LEVOTHYROX [Concomitant]
     Indication: HYPOTHYROIDISM
     Dosage: 25 UG
     Route: 048
     Dates: start: 20080101
  6. CORDARONE [Concomitant]
     Indication: ARRHYTHMIA
     Dosage: 200 MG, QD
     Route: 048
  7. CARDENSIEL [Concomitant]
     Indication: HYPERTENSION
     Dosage: 7.5 MG, QD
     Dates: start: 20080401
  8. LIPANTHYL 67 [Concomitant]
     Indication: DYSLIPIDAEMIA
     Dosage: 1 DF, QD
     Route: 048
  9. UN-ALFA [Concomitant]
     Indication: RENAL TRANSPLANT
     Dosage: 1 UG, QD
     Route: 048
  10. INIPOMP [Concomitant]
     Indication: GASTRITIS
     Dosage: 20 MG, QD
     Route: 048
     Dates: start: 20050401
  11. PREVISCAN [Concomitant]
     Indication: THROMBOSIS PROPHYLAXIS
     Dosage: 20 MG, QD
     Dates: start: 20000501
  12. XATRAL [Concomitant]
     Indication: BENIGN PROSTATIC HYPERPLASIA
     Dosage: 10 MG, QD
     Route: 048
  13. LANTUS [Concomitant]
     Indication: DIABETES MELLITUS
     Dosage: UNK
     Route: 058
     Dates: start: 20080313
  14. HUMALOG [Concomitant]
     Indication: DIABETES MELLITUS
     Dosage: UNK
     Route: 058
     Dates: start: 20080313
  15. AMLOR [Concomitant]
     Indication: HYPERTENSION
     Dosage: 5 MG, QD

REACTIONS (3)
  - DIABETES MELLITUS INADEQUATE CONTROL [None]
  - MICROANGIOPATHY [None]
  - NEPHROPATHY TOXIC [None]
